FAERS Safety Report 21229283 (Version 2)
Quarter: 2022Q4

REPORT INFORMATION
  Report Type: Report from Study
  Country: CA (occurrence: CA)
  Receive Date: 20220818
  Receipt Date: 20221019
  Transmission Date: 20230113
  Serious: Yes (Hospitalization)
  Sender: FDA-Public Use
  Company Number: CA-ABBVIE-22K-028-4502287-00

PATIENT
  Age: 91 Year
  Sex: Female

DRUGS (2)
  1. RINVOQ [Suspect]
     Active Substance: UPADACITINIB
     Indication: Rheumatoid arthritis
     Dosage: THE CESSATION DATE WAS 2022, DUE TO SYSTEM ISSUE IT WAS CAPTURED HERE?STRENGTH 15 MILLIGRAM
     Route: 048
     Dates: start: 20210831
  2. RINVOQ [Suspect]
     Active Substance: UPADACITINIB
     Indication: Rheumatoid arthritis
     Dosage: STRENGTH 15 MILLIGRAM
     Route: 048
     Dates: start: 20220809

REACTIONS (5)
  - Ankle fracture [Unknown]
  - Fibula fracture [Unknown]
  - Fall [Recovered/Resolved]
  - Confusional state [Unknown]
  - Fall [Unknown]

NARRATIVE: CASE EVENT DATE: 20220731
